FAERS Safety Report 7702912-X (Version None)
Quarter: 2011Q3

REPORT INFORMATION
  Report Type: 
  Country: None (occurrence: None)
  Receive Date: 20110823
  Receipt Date: 20110811
  Transmission Date: 20111222
  Serious: Yes (Other)
  Sender: FDA-Public Use
  Company Number: US-JNJFOC-20101005700

PATIENT
  Sex: Male
  Weight: 115.21 kg

DRUGS (8)
  1. ENBREL [Suspect]
     Indication: PRODUCT USED FOR UNKNOWN INDICATION
     Route: 065
     Dates: start: 20100622, end: 20100920
  2. PREDNISONE [Concomitant]
     Indication: RHEUMATOID ARTHRITIS
     Route: 065
  3. SINGULAIR [Concomitant]
     Route: 065
  4. METHOTREXATE [Concomitant]
     Indication: RHEUMATOID ARTHRITIS
     Route: 065
  5. ALBUTEROL SULFATE AUTOHALER [Concomitant]
     Route: 065
  6. FLOVENT [Concomitant]
     Route: 065
  7. REMICADE [Suspect]
     Indication: RHEUMATOID ARTHRITIS
     Route: 042
     Dates: start: 20101018
  8. REMICADE [Suspect]
     Route: 042
     Dates: start: 20080701, end: 20090623

REACTIONS (1)
  - PEYRONIE'S DISEASE [None]
